FAERS Safety Report 6894226-5 (Version None)
Quarter: 2010Q3

REPORT INFORMATION
  Report Type: 
  Country: None (occurrence: None)
  Receive Date: 20100802
  Receipt Date: 20100720
  Transmission Date: 20110219
  Serious: Yes (Other)
  Sender: FDA-Public Use
  Company Number: PHHY2010US37659

PATIENT
  Sex: Female
  Weight: 67.45 kg

DRUGS (5)
  1. RECLAST [Suspect]
     Indication: OSTEOPOROSIS
     Dosage: 5 MG
     Route: 042
     Dates: start: 20091015
  2. NORCO [Concomitant]
     Indication: PAIN
     Dosage: 10/325
     Route: 048
  3. FENTANYL [Concomitant]
     Indication: PAIN
     Dosage: 50 UG, UNK
     Route: 058
  4. SOMA [Concomitant]
     Indication: MUSCLE SPASMS
     Dosage: 350 UNK, QID
     Route: 048
  5. PREMARIN [Concomitant]
     Indication: MENOPAUSAL SYMPTOMS
     Dosage: 1.25 UNK, QD
     Route: 048

REACTIONS (5)
  - ABSCESS JAW [None]
  - JAW DISORDER [None]
  - KLEBSIELLA INFECTION [None]
  - OSTEONECROSIS OF JAW [None]
  - PERIODONTAL DISEASE [None]
